APPROVED DRUG PRODUCT: ISONIAZID
Active Ingredient: ISONIAZID
Strength: 50MG/5ML
Dosage Form/Route: SYRUP;ORAL
Application: A081118 | Product #001 | TE Code: AA
Applicant: CHARTWELL RX SCIENCES LLC
Approved: Jul 21, 1997 | RLD: No | RS: No | Type: RX